FAERS Safety Report 24925551 (Version 1)
Quarter: 2025Q1

REPORT INFORMATION
  Report Type: Report from Study
  Country: US (occurrence: US)
  Receive Date: 20250204
  Receipt Date: 20250204
  Transmission Date: 20250409
  Serious: No
  Sender: EXELIXIS
  Company Number: US-EXELIXIS-CABO-24076382

PATIENT
  Age: 67 Year
  Sex: Male

DRUGS (5)
  1. CABOMETYX [Suspect]
     Active Substance: CABOZANTINIB S-MALATE
     Indication: Renal cell carcinoma
     Dosage: 40 MG, QD
     Dates: start: 20240401
  2. OPDIVO [Suspect]
     Active Substance: NIVOLUMAB
     Indication: Renal cell carcinoma
     Dates: start: 20240401
  3. LEVOTHYROXINE [Concomitant]
     Active Substance: LEVOTHYROXINE
  4. PROCHLORPERAZINE [Concomitant]
     Active Substance: PROCHLORPERAZINE
  5. ONDANSETRON [Concomitant]
     Active Substance: ONDANSETRON

REACTIONS (8)
  - Blood pressure increased [Recovering/Resolving]
  - Taste disorder [Unknown]
  - Constipation [Recovering/Resolving]
  - Rash [Not Recovered/Not Resolved]
  - Oropharyngeal discomfort [Unknown]
  - Furuncle [Recovered/Resolved]
  - Dry mouth [Unknown]
  - Cough [Unknown]

NARRATIVE: CASE EVENT DATE: 20240401
